FAERS Safety Report 10700576 (Version 2)
Quarter: 2016Q1

REPORT INFORMATION
  Report Type: Spontaneous
  Country: US (occurrence: US)
  Receive Date: 20141224
  Receipt Date: 20160120
  Transmission Date: 20160525
  Serious: Yes (Hospitalization, Other)
  Sender: FDA-Public Use
  Company Number: PHEH2014US015584

PATIENT
  Age: 52 Year
  Sex: Female

DRUGS (2)
  1. ZYKADIA [Suspect]
     Active Substance: CERITINIB
     Indication: LUNG NEOPLASM MALIGNANT
     Dosage: 750 MG (5 DF), QD
     Route: 048
     Dates: start: 20140521, end: 20140729
  2. ZYKADIA [Suspect]
     Active Substance: CERITINIB
     Dosage: 3 DF (450 MG), QD
     Route: 048
     Dates: start: 20140729

REACTIONS (3)
  - Pneumonia [Unknown]
  - Vomiting [Unknown]
  - Nausea [Unknown]

NARRATIVE: CASE EVENT DATE: 20140729
